FAERS Safety Report 15011137 (Version 1)
Quarter: 2018Q2

REPORT INFORMATION
  Report Type: Spontaneous
  Country: US (occurrence: US)
  Receive Date: 20180522
  Receipt Date: 20180522
  Transmission Date: 20180711
  Serious: Yes (Life-Threatening, Disabling)
  Sender: FDA-Public Use
  Company Number: None

PATIENT
  Age: 64 Year
  Sex: Male
  Weight: 81.65 kg

DRUGS (1)
  1. TECHNETIUM TC99M MEDRONATE INJECTION [Suspect]
     Active Substance: TECHNETIUM TC-99M MEDRONATE
     Indication: NEOPLASM MALIGNANT
     Route: 042
     Dates: start: 20140407, end: 20140407

REACTIONS (18)
  - Dysgeusia [None]
  - Pain [None]
  - Insomnia [None]
  - Temperature intolerance [None]
  - Nightmare [None]
  - Arthralgia [None]
  - Fine motor skill dysfunction [None]
  - Headache [None]
  - Malaise [None]
  - Coordination abnormal [None]
  - Dizziness [None]
  - Nausea [None]
  - Seizure [None]
  - Asthenia [None]
  - Incontinence [None]
  - Pyrexia [None]
  - Muscular weakness [None]
  - Musculoskeletal pain [None]

NARRATIVE: CASE EVENT DATE: 20140407
